FAERS Safety Report 14804497 (Version 1)
Quarter: 2018Q2

REPORT INFORMATION
  Report Type: Spontaneous
  Country: FR (occurrence: FR)
  Receive Date: 20180425
  Receipt Date: 20180425
  Transmission Date: 20180711
  Serious: Yes (Other)
  Sender: FDA-Public Use
  Company Number: FR-MERCK KGAA-2046441

PATIENT
  Age: 49 Year
  Sex: Female

DRUGS (1)
  1. NOVOTHYROX [Suspect]
     Active Substance: LEVOTHYROXINE SODIUM
     Indication: POST PROCEDURAL HYPOTHYROIDISM
     Dates: start: 20170810, end: 2017

REACTIONS (29)
  - Loss of personal independence in daily activities [None]
  - Myalgia [Recovered/Resolved]
  - Asthenia [None]
  - Muscle spasms [Recovered/Resolved]
  - Hot flush [Recovered/Resolved]
  - Gastrointestinal motility disorder [None]
  - Feeling abnormal [None]
  - Crying [None]
  - Psychiatric symptom [None]
  - Haemorrhoids [None]
  - Disturbance in attention [Recovered/Resolved]
  - Gait disturbance [None]
  - Marital problem [None]
  - Affect lability [None]
  - Hyperacusis [None]
  - Oedema peripheral [Recovered/Resolved]
  - Nausea [Recovered/Resolved]
  - Arthralgia [None]
  - Impaired driving ability [None]
  - Blood prolactin increased [None]
  - Insomnia [Recovered/Resolved]
  - Fatigue [Recovered/Resolved]
  - Irritability [None]
  - Memory impairment [Recovered/Resolved]
  - Anxiety [None]
  - Social problem [None]
  - Vertigo [Recovered/Resolved]
  - Abdominal pain [None]
  - Headache [Recovered/Resolved]

NARRATIVE: CASE EVENT DATE: 2017
